FAERS Safety Report 11704161 (Version 1)
Quarter: 2015Q4

REPORT INFORMATION
  Report Type: Spontaneous
  Country: US (occurrence: None)
  Receive Date: 20151105
  Receipt Date: 20151105
  Transmission Date: 20160304
  Serious: Yes (Other)
  Sender: FDA-Public Use
  Company Number: None

PATIENT
  Age: 76 Year
  Sex: Female
  Weight: 77.11 kg

DRUGS (9)
  1. ACIPHEX [Concomitant]
     Active Substance: RABEPRAZOLE SODIUM
  2. ATENOLOL. [Concomitant]
     Active Substance: ATENOLOL
  3. ADVIL [Concomitant]
     Active Substance: IBUPROFEN
  4. BABY ASPIRIN [Concomitant]
     Active Substance: ASPIRIN
  5. CENTRUM [Concomitant]
     Active Substance: VITAMINS
  6. COZAAR [Concomitant]
     Active Substance: LOSARTAN POTASSIUM
  7. LORAZEPAN [Concomitant]
     Active Substance: LORAZEPAM
  8. XIFAXAN [Suspect]
     Active Substance: RIFAXIMIN
     Indication: GASTROINTESTINAL DISORDER
     Dosage: 1 PILL
     Route: 048
     Dates: start: 20151101, end: 20151101
  9. SYNTHROID [Concomitant]
     Active Substance: LEVOTHYROXINE SODIUM

REACTIONS (3)
  - Dyspnoea [None]
  - Discomfort [None]
  - Fatigue [None]

NARRATIVE: CASE EVENT DATE: 20151101
